FAERS Safety Report 6347720-X (Version None)
Quarter: 2009Q3

REPORT INFORMATION
  Report Type: 
  Country: None (occurrence: None)
  Receive Date: 20090910
  Receipt Date: 20090907
  Transmission Date: 20100115
  Serious: Yes (Other)
  Sender: FDA-Public Use
  Company Number: AU-JNJFOC-20090902706

PATIENT
  Sex: Female

DRUGS (3)
  1. NIZORAL [Suspect]
     Indication: FUNGAL INFECTION
     Route: 065
  2. ZYRTEC [Concomitant]
     Indication: SEASONAL ALLERGY
     Route: 065
  3. NEXIUM [Concomitant]
     Indication: SEASONAL ALLERGY
     Route: 065

REACTIONS (1)
  - URINARY TRACT INFECTION [None]
